FAERS Safety Report 10171784 (Version 5)
Quarter: 2014Q3

REPORT INFORMATION
  Report Type: Spontaneous
  Country: JP (occurrence: JP)
  Receive Date: 20140514
  Receipt Date: 20140828
  Transmission Date: 20150326
  Serious: Yes (Hospitalization)
  Sender: FDA-Public Use
  Company Number: JP-CELGENEUS-087-21880-14033130

PATIENT
  Age: 65 Year
  Sex: Male
  Weight: 40 kg

DRUGS (13)
  1. LENADEX [Suspect]
     Active Substance: DEXAMETHASONE ACETATE
     Indication: PLASMA CELL MYELOMA
     Route: 048
     Dates: end: 20140115
  2. REVLIMID [Suspect]
     Active Substance: LENALIDOMIDE
     Indication: PLASMA CELL MYELOMA
     Dosage: 10 MILLIGRAM
     Route: 048
     Dates: start: 20131225, end: 20140211
  3. ONEALFA [Concomitant]
     Active Substance: ALFACALCIDOL
     Indication: OSTEOPOROSIS
     Dosage: 1 MILLIGRAM
     Route: 048
     Dates: start: 20140217
  4. BAKTAR [Concomitant]
     Active Substance: SULFAMETHOXAZOLE\TRIMETHOPRIM
     Indication: INFECTION PROPHYLAXIS
     Dosage: 4 TABLET
     Route: 048
     Dates: end: 20140214
  5. PREDONINE [Concomitant]
     Active Substance: PREDNISOLONE\PREDNISOLONE ACETATE\PREDNISOLONE SODIUM SUCCINATE
     Indication: PLASMA CELL MYELOMA
     Dosage: 10 MILLIGRAM
     Route: 048
     Dates: start: 20140122, end: 20140211
  6. LIPITOR [Concomitant]
     Active Substance: ATORVASTATIN CALCIUM
     Indication: HYPERLIPIDAEMIA
     Dosage: 5 MILLIGRAM
     Route: 048
     Dates: end: 20140214
  7. ONEALFA [Concomitant]
     Active Substance: ALFACALCIDOL
     Indication: BACK PAIN
     Dosage: 1 MILLIGRAM
     Route: 048
     Dates: start: 20140217
  8. MAGLAX [Concomitant]
     Active Substance: MAGNESIUM OXIDE
     Indication: CONSTIPATION
     Dosage: 990 MILLIGRAM
     Route: 048
     Dates: end: 20140214
  9. REVLIMID [Suspect]
     Active Substance: LENALIDOMIDE
     Dosage: 10 MILLIGRAM
     Route: 048
     Dates: start: 20140311, end: 20140314
  10. ITRIZOLE [Concomitant]
     Active Substance: ITRACONAZOLE
     Indication: INFECTION PROPHYLAXIS
     Dosage: 50 MILLIGRAM
     Route: 048
     Dates: end: 20140214
  11. ARICEPT [Suspect]
     Active Substance: DONEPEZIL HYDROCHLORIDE
     Indication: PRODUCT USED FOR UNKNOWN INDICATION
     Dosage: 5 MILLIGRAM
     Route: 048
     Dates: start: 20140217, end: 20140314
  12. SPIRONOLACTONE. [Concomitant]
     Active Substance: SPIRONOLACTONE
     Indication: CARDIAC FAILURE CONGESTIVE
     Dosage: 25 MILLIGRAM
     Route: 048
     Dates: end: 20140214
  13. TAKEPRON [Concomitant]
     Active Substance: LANSOPRAZOLE
     Indication: PROPHYLAXIS AGAINST GASTROINTESTINAL ULCER
     Dosage: 15 MILLIGRAM
     Route: 048
     Dates: end: 20140214

REACTIONS (7)
  - Rectal tenesmus [Recovered/Resolved]
  - Diarrhoea [Recovered/Resolved]
  - Gastrointestinal hypomotility [Recovered/Resolved]
  - Osteoporosis [Recovered/Resolved]
  - Agitation [Recovered/Resolved]
  - Memory impairment [Unknown]
  - Large intestine perforation [Recovered/Resolved]

NARRATIVE: CASE EVENT DATE: 20131225
